FAERS Safety Report 21733369 (Version 1)
Quarter: 2022Q4

REPORT INFORMATION
  Report Type: Other
  Country: US (occurrence: None)
  Receive Date: 20221215
  Receipt Date: 20221215
  Transmission Date: 20230113
  Serious: Yes (Other)
  Sender: FDA-Public Use
  Company Number: US-ROCHE-3241723

PATIENT
  Age: 22 Year
  Sex: Male

DRUGS (2)
  1. XELODA [Suspect]
     Active Substance: CAPECITABINE
     Indication: Neuroendocrine carcinoma
     Dosage: TAKE 4 TABLET(S) BY MOUTH TWICE A DAY FOR 14 DAYS, THEN 7 DAYS OFF TAKE WITH 150MG XELODA.
     Route: 048
  2. XELODA [Suspect]
     Active Substance: CAPECITABINE
     Dosage: TAKE 1 TABLET BY MOUTH TWICE A DAY FOR 14 DAYS, THEN 7 DAYS OFF TAKE WITH 500MG XELODA.
     Route: 048

REACTIONS (2)
  - Medullary thyroid cancer [Unknown]
  - Off label use [Unknown]
